FAERS Safety Report 20917482 (Version 1)
Quarter: 2022Q2

REPORT INFORMATION
  Report Type: Spontaneous
  Country: US (occurrence: US)
  Receive Date: 20220606
  Receipt Date: 20220606
  Transmission Date: 20220721
  Serious: No
  Sender: FDA-Public Use
  Company Number: US-ORGANON-O2205USA002403

PATIENT
  Age: 63 Year
  Sex: Male

DRUGS (26)
  1. ASMANEX [Suspect]
     Active Substance: MOMETASONE FUROATE
     Indication: Bronchitis chronic
     Dosage: 2 PUFFS DAILY
     Dates: start: 20220202
  2. ASMANEX [Suspect]
     Active Substance: MOMETASONE FUROATE
     Indication: Chronic obstructive pulmonary disease
  3. COMBIVENT RESPIMAT [Concomitant]
     Active Substance: ALBUTEROL SULFATE\IPRATROPIUM BROMIDE
     Dosage: UNK
  4. STIOLTO RESPIMAT [Concomitant]
     Active Substance: OLODATEROL HYDROCHLORIDE\TIOTROPIUM BROMIDE MONOHYDRATE
     Dosage: UNK
  5. ALBUTEROL [Concomitant]
     Active Substance: ALBUTEROL
     Dosage: THROUGH A NEBULIZER
  6. ARTIFICIAL TEARS [CARMELLOSE SODIUM] [Concomitant]
     Dosage: UNK
  7. ATORVASTATIN [Concomitant]
     Active Substance: ATORVASTATIN
     Dosage: UNK
  8. BENZONATATE [Concomitant]
     Active Substance: BENZONATATE
     Dosage: UNK
  9. CYCLOBENZAPRINE [Concomitant]
     Active Substance: CYCLOBENZAPRINE
     Dosage: UNK
  10. DICLOFENAC [Concomitant]
     Active Substance: DICLOFENAC
     Dosage: UNK
  11. DIPHENHYDRAMINE [Concomitant]
     Active Substance: DIPHENHYDRAMINE
     Dosage: UNK
  12. FLUOXETINE [Concomitant]
     Active Substance: FLUOXETINE HYDROCHLORIDE
     Dosage: UNK
  13. GUAIFENESIN [Concomitant]
     Active Substance: GUAIFENESIN
     Dosage: UNK
  14. HYDROCODONE [Concomitant]
     Active Substance: HYDROCODONE
     Dosage: 10/325
  15. LOPERAMIDE [Concomitant]
     Active Substance: LOPERAMIDE
     Dosage: UNK
  16. LORATADINE [Concomitant]
     Active Substance: LORATADINE
     Dosage: UNK
  17. LOSARTAN [Concomitant]
     Active Substance: LOSARTAN
     Dosage: UNK
  18. METFORMIN [Concomitant]
     Active Substance: METFORMIN HYDROCHLORIDE
     Dosage: UNK
  19. METOPROLOL [Concomitant]
     Active Substance: METOPROLOL
     Dosage: UNK
  20. MIRTAZAPINE [Concomitant]
     Active Substance: MIRTAZAPINE
     Dosage: UNK
  21. OLODATEROL [Concomitant]
     Active Substance: OLODATEROL
     Dosage: UNK
  22. OMEPRAZOLE [Concomitant]
     Active Substance: OMEPRAZOLE
     Dosage: UNK
  23. PREGABALIN [Concomitant]
     Active Substance: PREGABALIN
     Dosage: UNK
  24. QUETIAPINE [Concomitant]
     Active Substance: QUETIAPINE
     Dosage: UNK
  25. UREA [Concomitant]
     Active Substance: UREA
     Dosage: UNK
  26. VANICREAM [Concomitant]
     Active Substance: TITANIUM DIOXIDE\ZINC OXIDE
     Dosage: UNK

REACTIONS (5)
  - Peripheral swelling [Not Recovered/Not Resolved]
  - Oedema [Not Recovered/Not Resolved]
  - Chronic obstructive pulmonary disease [Not Recovered/Not Resolved]
  - Influenza like illness [Not Recovered/Not Resolved]
  - Product use in unapproved indication [Unknown]

NARRATIVE: CASE EVENT DATE: 20220202
